FAERS Safety Report 17158454 (Version 1)
Quarter: 2019Q4

REPORT INFORMATION
  Report Type: Spontaneous
  Country: US (occurrence: US)
  Receive Date: 20191213
  Receipt Date: 20191213
  Transmission Date: 20200122
  Serious: Yes (Hospitalization)
  Sender: FDA-Public Use
  Company Number: None

PATIENT
  Age: 75 Year
  Sex: Female
  Weight: 103.2 kg

DRUGS (7)
  1. RIVAROXABAN [Suspect]
     Active Substance: RIVAROXABAN
     Indication: ATRIAL FLUTTER
     Route: 048
  2. INSULIN ASPART 15 UNITS NIGHTLY AND 5 UNITS WITH BREAKFAST AND LUNCH [Concomitant]
  3. SOTALOL 120MG BID [Concomitant]
  4. LISINOPRIL/HCTZ 20/12.5MG BID [Concomitant]
  5. PRAVASTATIN 20MG DAILY [Concomitant]
  6. INSULIN GLARGINE 40MG NIGHTLY [Concomitant]
  7. ASPIRIN. [Suspect]
     Active Substance: ASPIRIN
     Route: 048

REACTIONS (7)
  - Platelet transfusion [None]
  - Packed red blood cell transfusion [None]
  - Asthenia [None]
  - Haemoglobin decreased [None]
  - Transfusion [None]
  - Gastrointestinal haemorrhage [None]
  - Haematocrit decreased [None]

NARRATIVE: CASE EVENT DATE: 20160216
